FAERS Safety Report 10073579 (Version 3)
Quarter: 2014Q2

REPORT INFORMATION
  Report Type: Spontaneous
  Country: US (occurrence: US)
  Receive Date: 20140411
  Receipt Date: 20140523
  Transmission Date: 20141212
  Serious: Yes (Hospitalization)
  Sender: FDA-Public Use
  Company Number: US-INCYTE CORPORATION-2014IN000952

PATIENT
  Sex: Male
  Weight: 117.46 kg

DRUGS (7)
  1. JAKAFI [Suspect]
     Indication: MYELOFIBROSIS
     Dosage: 5 MG, BID
     Route: 048
     Dates: start: 20130422
  2. PREDNISONE [Concomitant]
  3. LISINOPRIL [Concomitant]
  4. PROGRAF [Concomitant]
  5. RANITIDINE [Concomitant]
  6. SIMVASTATIN [Concomitant]
  7. FOLIC ACID [Concomitant]

REACTIONS (3)
  - Stress [Not Recovered/Not Resolved]
  - Psychotic disorder [Recovered/Resolved]
  - Drug dose omission [Unknown]
